FAERS Safety Report 14690133 (Version 2)
Quarter: 2018Q4

REPORT INFORMATION
  Report Type: Spontaneous
  Country: PL (occurrence: PL)
  Receive Date: 20180328
  Receipt Date: 20181228
  Transmission Date: 20190204
  Serious: Yes (Life-Threatening, Hospitalization, Disabling, Other)
  Sender: FDA-Public Use
  Company Number: PL-MYLANLABS-2018M1017925

PATIENT
  Age: 62 Year
  Sex: Female
  Weight: 137 kg

DRUGS (10)
  1. SERTRALINE [Interacting]
     Active Substance: SERTRALINE HYDROCHLORIDE
     Indication: DEPRESSION
     Dosage: 50 MG, AT NIGHT
     Route: 048
  2. METOPROLOL. [Suspect]
     Active Substance: METOPROLOL
     Indication: ATRIAL TACHYCARDIA
     Dosage: UNK
  3. VENLAFAXINE [Interacting]
     Active Substance: VENLAFAXINE HYDROCHLORIDE
     Indication: DEPRESSION
     Dosage: 150 MG IN THE MORNING, IN THE AFTERNOON
     Route: 048
  4. SOTALOL. [Concomitant]
     Active Substance: SOTALOL
  5. ESCITALOPRAM [Suspect]
     Active Substance: ESCITALOPRAM OXALATE
     Indication: PRODUCT USED FOR UNKNOWN INDICATION
     Dosage: UNK
     Route: 065
  6. GINKGO BILOBA EXTRACT              /01003110/ [Concomitant]
  7. TRAZODONE [Suspect]
     Active Substance: TRAZODONE HYDROCHLORIDE
     Indication: PRODUCT USED FOR UNKNOWN INDICATION
     Dosage: UNK
     Route: 065
  8. ZOLPIDEM [Suspect]
     Active Substance: ZOLPIDEM\ZOLPIDEM TARTRATE
     Indication: INSOMNIA
     Dosage: 10 MG, AT BEDTIME
     Route: 048
  9. WARFARIN [Concomitant]
     Active Substance: WARFARIN
  10. MOCLOBEMIDE [Interacting]
     Active Substance: MOCLOBEMIDE
     Indication: DEPRESSION
     Dosage: 150 MG, IN AFTERNOON
     Route: 048

REACTIONS (13)
  - Ischaemic stroke [Unknown]
  - Arrhythmia [Recovering/Resolving]
  - Palpitations [Recovered/Resolved]
  - Middle insomnia [Recovered/Resolved]
  - Fatigue [Unknown]
  - Drug ineffective [Unknown]
  - Insomnia [Recovered/Resolved]
  - Apallic syndrome [Unknown]
  - Atrial tachycardia [Recovered/Resolved]
  - Electrocardiogram QT prolonged [Recovered/Resolved]
  - Drug interaction [Recovering/Resolving]
  - Syncope [Unknown]
  - Initial insomnia [Recovered/Resolved]
